FAERS Safety Report 20365044 (Version 2)
Quarter: 2022Q1

REPORT INFORMATION
  Report Type: Report from Study
  Country: US (occurrence: US)
  Receive Date: 20220122
  Receipt Date: 20220215
  Transmission Date: 20220423
  Serious: Yes (Hospitalization)
  Sender: FDA-Public Use
  Company Number: US-REGENERON PHARMACEUTICALS, INC.-2022-16826

PATIENT

DRUGS (19)
  1. FIANLIMAB [Suspect]
     Active Substance: FIANLIMAB
     Indication: Breast cancer
     Dosage: 1600 MG, Q3W
     Route: 042
     Dates: start: 20211207
  2. CEMIPLIMAB [Suspect]
     Active Substance: CEMIPLIMAB
     Indication: Breast cancer
     Dosage: 350 MG, Q3W
     Route: 042
     Dates: start: 20211207
  3. PACLITAXEL [Suspect]
     Active Substance: PACLITAXEL
     Indication: Breast cancer
     Dosage: 80 MG/M2, WEEKLY
     Route: 042
     Dates: start: 20211207, end: 20211227
  4. PACLITAXEL [Suspect]
     Active Substance: PACLITAXEL
     Indication: Breast cancer
     Dosage: 100 MG/M2, WEEKLY
     Route: 042
     Dates: start: 20211228
  5. TYLENOL                            /00020001/ [Concomitant]
     Indication: Pain
     Dosage: 500 MG, 2 TAB
     Route: 048
     Dates: start: 20211210
  6. DIPHENHYDRAMINE [Concomitant]
     Active Substance: DIPHENHYDRAMINE
     Indication: Rash maculo-papular
     Dosage: 25 MG, UNK
     Route: 042
     Dates: start: 20211218, end: 20211218
  7. DIPHENHYDRAMINE [Concomitant]
     Active Substance: DIPHENHYDRAMINE
     Dosage: 50 MG, TID IN THE EVENING
     Route: 048
     Dates: start: 20211220
  8. FAMOTIDINE [Concomitant]
     Active Substance: FAMOTIDINE
     Indication: Rash maculo-papular
     Dosage: 20 MG, UNK
     Route: 042
     Dates: start: 20211218, end: 20211218
  9. FAMOTIDINE [Concomitant]
     Active Substance: FAMOTIDINE
     Dosage: 20 MG, BID
     Route: 048
     Dates: start: 20211220
  10. METHYLPREDNISOLONE [Concomitant]
     Active Substance: METHYLPREDNISOLONE
     Indication: Rash maculo-papular
     Dosage: 125 MG, UNK
     Route: 042
     Dates: start: 20211218, end: 20211218
  11. PREDNISONE [Concomitant]
     Active Substance: PREDNISONE
     Indication: Rash maculo-papular
     Dosage: 100 MG, UNK
     Route: 048
     Dates: start: 20211221, end: 20211230
  12. PREDNISONE [Concomitant]
     Active Substance: PREDNISONE
     Dosage: 80 MG, UNK
     Route: 048
     Dates: start: 20211231, end: 20220103
  13. PREDNISONE [Concomitant]
     Active Substance: PREDNISONE
     Dosage: 100 MG, UNK
     Route: 048
     Dates: start: 20220104
  14. CETIRIZINE [Concomitant]
     Active Substance: CETIRIZINE HYDROCHLORIDE
     Indication: Rash maculo-papular
     Dosage: 10 MG, QD
     Route: 048
     Dates: start: 20211220
  15. IBUPROFEN [Concomitant]
     Active Substance: IBUPROFEN
     Indication: Product used for unknown indication
     Dosage: 400 MG, AS NECESSARY
     Route: 048
     Dates: start: 20211218
  16. XANAX [Concomitant]
     Active Substance: ALPRAZOLAM
     Indication: Product used for unknown indication
     Dosage: 0.5 MG, AS NECESSARY
     Route: 048
     Dates: start: 20201210
  17. HYDRODIURIL [Concomitant]
     Active Substance: HYDROCHLOROTHIAZIDE
     Indication: Product used for unknown indication
     Dosage: 25 MG, QD
     Route: 048
     Dates: start: 20211011
  18. VALTREX [Concomitant]
     Active Substance: VALACYCLOVIR HYDROCHLORIDE
     Indication: Product used for unknown indication
     Dosage: UNK, PRN
     Route: 048
     Dates: start: 20201008
  19. VIVELLE-DOT [Concomitant]
     Active Substance: ESTRADIOL
     Indication: Product used for unknown indication
     Dosage: 0.1 MG/24HR, Q2W
     Route: 062
     Dates: start: 20211019

REACTIONS (1)
  - Rash pustular [Recovering/Resolving]

NARRATIVE: CASE EVENT DATE: 20220111
